FAERS Safety Report 8439804-7 (Version None)
Quarter: 2012Q2

REPORT INFORMATION
  Report Type: 
  Country: None (occurrence: None)
  Receive Date: 20120615
  Receipt Date: 20120613
  Transmission Date: 20120825
  Serious: No
  Sender: FDA-Public Use
  Company Number: US-PFIZER INC-2012142699

PATIENT
  Sex: Male
  Weight: 61.224 kg

DRUGS (1)
  1. LYRICA [Suspect]
     Indication: PAIN
     Dosage: 100 MG, 4X/DAY
     Route: 048

REACTIONS (1)
  - WEIGHT DECREASED [None]
